FAERS Safety Report 11554127 (Version 1)
Quarter: 2015Q3

REPORT INFORMATION
  Report Type: Spontaneous
  Country: DE (occurrence: DE)
  Receive Date: 20150925
  Receipt Date: 20150925
  Transmission Date: 20151125
  Serious: Yes (Other)
  Sender: FDA-Public Use
  Company Number: DE-AMGEN-DEUSP2014072960

PATIENT
  Sex: Male

DRUGS (3)
  1. ENBREL [Suspect]
     Active Substance: ETANERCEPT
     Indication: PSORIATIC ARTHROPATHY
  2. ENBREL [Suspect]
     Active Substance: ETANERCEPT
     Indication: RHEUMATOID ARTHRITIS
  3. ENBREL [Suspect]
     Active Substance: ETANERCEPT
     Indication: EXPOSURE DURING PREGNANCY
     Dosage: 25 MG, WEEKLY
     Route: 050
     Dates: start: 20100215

REACTIONS (3)
  - Exposure via father [Recovered/Resolved]
  - Umbilical cord around neck [Recovered/Resolved]
  - Asphyxia [Recovered/Resolved]

NARRATIVE: CASE EVENT DATE: 201408
